FAERS Safety Report 6379554-4 (Version None)
Quarter: 2009Q3

REPORT INFORMATION
  Report Type: 
  Country: None (occurrence: None)
  Receive Date: 20090923
  Receipt Date: 20090911
  Transmission Date: 20100115
  Serious: Yes (Hospitalization)
  Sender: FDA-Public Use
  Company Number: 8050336

PATIENT
  Age: 36 Year
  Sex: Female

DRUGS (4)
  1. KEPPRA [Suspect]
     Indication: EPILEPSY
     Dosage: 1000 MG / D PO
     Route: 048
     Dates: start: 20090101
  2. VITAMIN TAB [Concomitant]
  3. FOLIC ACID [Concomitant]
  4. DHA [Concomitant]

REACTIONS (1)
  - BLEEDING PERIPARTUM [None]
